FAERS Safety Report 23707163 (Version 2)
Quarter: 2024Q2

REPORT INFORMATION
  Report Type: Spontaneous
  Country: PL (occurrence: PL)
  Receive Date: 20240404
  Receipt Date: 20240409
  Transmission Date: 20240716
  Serious: Yes (Other)
  Sender: FDA-Public Use
  Company Number: PL-AMGEN-POLSP2024056574

PATIENT
  Age: 53 Year
  Sex: Male

DRUGS (4)
  1. DEXAMETHASONE [Suspect]
     Active Substance: DEXAMETHASONE
     Indication: Plasma cell myeloma refractory
     Dosage: UNK UNK, Q4WK ON DAYS 1, 8, 15
     Route: 065
     Dates: start: 202211
  2. KYPROLIS [Suspect]
     Active Substance: CARFILZOMIB
     Indication: Plasma cell myeloma refractory
     Dosage: 70 MILLIGRAM/SQ. METER 11 81 15 IN A CYCLE EVERY FOUR WEEKS
     Route: 065
     Dates: start: 202211
  3. KYPROLIS [Suspect]
     Active Substance: CARFILZOMIB
     Dosage: 30 MILLIGRAM
     Route: 065
     Dates: start: 20221115
  4. KYPROLIS [Suspect]
     Active Substance: CARFILZOMIB
     Dosage: 140 MILLIGRAM
     Route: 065
     Dates: start: 20221122, end: 20240315

REACTIONS (2)
  - Thrombocytopenia [Unknown]
  - Therapy partial responder [Unknown]
